FAERS Safety Report 9253407 (Version 1)
Quarter: 2013Q2

REPORT INFORMATION
  Report Type: Spontaneous
  Country: US (occurrence: US)
  Receive Date: 20130425
  Receipt Date: 20130425
  Transmission Date: 20140414
  Serious: Yes (Other)
  Sender: FDA-Public Use
  Company Number: US-JNJCP-30000141826

PATIENT
  Age: 28 Year
  Sex: Female
  Weight: 91 kg

DRUGS (54)
  1. NEUTROGENA ADVANCED SOLUTIONS COMPLETE ACNE THERAPY SYSTEM [Suspect]
     Indication: REMOVAL OF INERT MATTER FROM SKIN OR SUBCUTANEOUS TISSUE
     Dosage: PEA SIZE AMOUNT ONE TIME USE
     Route: 061
     Dates: start: 20121212, end: 20121212
  2. NO DRUG NAME [Concomitant]
  3. NO DRUG NAME [Concomitant]
  4. NO DRUG NAME [Concomitant]
  5. NEUTROGENA ADVANCED SOLUTIONS COMPLETE ACNE THERAPY SYSTEM [Suspect]
     Indication: REMOVAL OF INERT MATTER FROM SKIN OR SUBCUTANEOUS TISSUE
     Dosage: IN PEA SIZE AMOUNT ONE TIME USE
     Route: 061
     Dates: start: 20121212, end: 20121212
  6. NEUTROGENA ADVANCED SOLUTIONS COMPLETE ACNE THERAPY SYSTEM [Suspect]
     Indication: PROPHYLAXIS
     Route: 061
  7. NO DRUG NAME [Concomitant]
  8. NO DRUG NAME [Concomitant]
  9. NO DRUG NAME [Concomitant]
  10. NO DRUG NAME [Concomitant]
  11. NO DRUG NAME [Concomitant]
  12. NO DRUG NAME [Concomitant]
  13. NO DRUG NAME [Concomitant]
  14. NO DRUG NAME [Concomitant]
  15. NO DRUG NAME [Concomitant]
  16. NO DRUG NAME [Concomitant]
  17. NO DRUG NAME [Concomitant]
  18. NO DRUG NAME [Concomitant]
  19. NO DRUG NAME [Concomitant]
  20. NO DRUG NAME [Concomitant]
  21. NO DRUG NAME [Concomitant]
  22. NO DRUG NAME [Concomitant]
  23. NO DRUG NAME [Concomitant]
  24. NO DRUG NAME [Concomitant]
  25. NO DRUG NAME [Concomitant]
  26. NO DRUG NAME [Concomitant]
  27. NO DRUG NAME [Concomitant]
  28. NO DRUG NAME [Concomitant]
  29. NO DRUG NAME [Concomitant]
  30. NO DRUG NAME [Concomitant]
  31. NO DRUG NAME [Concomitant]
  32. NO DRUG NAME [Concomitant]
  33. NO DRUG NAME [Concomitant]
  34. NO DRUG NAME [Concomitant]
  35. NO DRUG NAME [Concomitant]
  36. NO DRUG NAME [Concomitant]
  37. NO DRUG NAME [Concomitant]
  38. NO DRUG NAME [Concomitant]
  39. NO DRUG NAME [Concomitant]
  40. NO DRUG NAME [Concomitant]
  41. NO DRUG NAME [Concomitant]
  42. NO DRUG NAME [Concomitant]
  43. NO DRUG NAME [Concomitant]
  44. NO DRUG NAME [Concomitant]
  45. NO DRUG NAME [Concomitant]
  46. NO DRUG NAME [Concomitant]
  47. NO DRUG NAME [Concomitant]
  48. NO DRUG NAME [Concomitant]
  49. NO DRUG NAME [Concomitant]
  50. NO DRUG NAME [Concomitant]
  51. NO DRUG NAME [Concomitant]
  52. NO DRUG NAME [Concomitant]
  53. NO DRUG NAME [Concomitant]
  54. NO DRUG NAME [Concomitant]

REACTIONS (2)
  - Dermatitis contact [Recovered/Resolved]
  - Impetigo [Recovered/Resolved]
